FAERS Safety Report 16360583 (Version 5)
Quarter: 2020Q4

REPORT INFORMATION
  Report Type: Report from Study
  Country: US (occurrence: US)
  Receive Date: 20190528
  Receipt Date: 20201010
  Transmission Date: 20210113
  Serious: No
  Sender: FDA-Public Use
  Company Number: US-IPSEN BIOPHARMACEUTICALS, INC.-2019-08309

PATIENT
  Age: 5 Year
  Sex: Male
  Weight: 22.9 kg

DRUGS (12)
  1. MIRALAX [Concomitant]
     Active Substance: POLYETHYLENE GLYCOL 3350
     Indication: CONSTIPATION
     Dosage: 1 TSBP
     Dates: start: 20140329, end: 20181119
  2. CHOLECALCIFEROL [Concomitant]
     Active Substance: CHOLECALCIFEROL
     Indication: VITAMIN D
     Route: 048
     Dates: start: 20190108
  3. IBUPROFEN. [Concomitant]
     Active Substance: IBUPROFEN
     Indication: PAIN
     Dates: start: 20161112
  4. CULTURELLE KIDS CHEWABLES [Concomitant]
     Indication: BOWEL MOVEMENT IRREGULARITY
     Dates: start: 20180730
  5. MELATONIN [Concomitant]
     Active Substance: MELATONIN
     Dosage: AS NEEDED
     Dates: start: 20200325, end: 20200331
  6. BACLOFEN. [Concomitant]
     Active Substance: BACLOFEN
     Indication: MUSCLE SPASTICITY
     Dates: start: 20150102
  7. ACYCLOVIR. [Concomitant]
     Active Substance: ACYCLOVIR
     Indication: HERPES VIRUS INFECTION
     Dosage: 400 MG 3 TIMES A DAY
     Dates: start: 20190114, end: 20190119
  8. MELATONIN [Concomitant]
     Active Substance: MELATONIN
     Indication: INSOMNIA
     Dosage: AS NEEDED
     Dates: start: 20200225, end: 20200325
  9. DYSPORT [Suspect]
     Active Substance: ABOBOTULINUMTOXINA
     Indication: MUSCLE SPASTICITY
     Dosage: 400 IU
     Route: 030
     Dates: start: 20190301, end: 20190301
  10. MIRALAX [Concomitant]
     Active Substance: POLYETHYLENE GLYCOL 3350
     Indication: CONSTIPATION
     Dosage: 1 TBSP TWICE PER DAY
     Dates: start: 20181119
  11. MILK OF MAGNESIA [Concomitant]
     Active Substance: MAGNESIUM HYDROXIDE
     Indication: CONSTIPATION
     Dosage: 1 TABLESPOON
     Route: 048
     Dates: start: 20180730
  12. CLONIDINE. [Concomitant]
     Active Substance: CLONIDINE
     Indication: INSOMNIA
     Dates: start: 20200331

REACTIONS (2)
  - Otitis externa [Recovered/Resolved]
  - Otitis media acute [Recovered/Resolved]

NARRATIVE: CASE EVENT DATE: 20190518
